FAERS Safety Report 10404223 (Version 1)
Quarter: 2014Q1

REPORT INFORMATION
  Report Type: Spontaneous
  Country: US (occurrence: None)
  Receive Date: 20140214
  Receipt Date: 20140214
  Transmission Date: 20141002
  Serious: No
  Sender: FDA-Public Use
  Company Number: A-US2014-93818

PATIENT
  Age: 64 Year
  Sex: Female

DRUGS (18)
  1. OPSUMIT [Suspect]
     Indication: PRODUCT USED FOR UNKNOWN INDICATION
     Route: 048
  2. MECLIZINE (MECLOZINE) [Concomitant]
  3. MONTELUKAST (MONTELUKAST SODIUM) [Concomitant]
  4. BROVANA.(ARFORMOTEROL TARTRATE) [Concomitant]
  5. PRO-AIR (PROCATEROL HYDROCHLORIDE) [Concomitant]
  6. BUMETANIDE (BUMETANIDE) [Concomitant]
  7. AZOR (AMLODIPINE BESILATE, OLMESARTAN MEDOXOMIL) [Concomitant]
  8. CARVEDILOL (CARVEDILOL) [Concomitant]
  9. SIMVASTATIN (SIMVASTATIN) [Concomitant]
  10. SERTRALINE (SERTRALINE HYDROCHLORIDE) [Concomitant]
  11. ISOSORBIDE MONONITRATE (ISOSORBIDE MONONITRATE) [Concomitant]
  12. VITAMIN D (COLECALCIFEROL) [Concomitant]
  13. CALCIUM (CALCIUM CARBONATE, CALCIUM LACTATE GLUCONATE) [Concomitant]
  14. GABAPENTIN (GABAPENTIN) [Concomitant]
  15. INSULIN (INSULIN PORCINE) [Concomitant]
  16. XANAX (ALPRAZOLAM) [Concomitant]
  17. OXYCODONE (OXYCODONE) [Concomitant]
  18. NITROGLYCERIN (GLYCERYL TRINITRATE) [Concomitant]

REACTIONS (4)
  - Blood pressure decreased [None]
  - Fatigue [None]
  - Micturition urgency [None]
  - Dizziness [None]
